FAERS Safety Report 8399683-3 (Version None)
Quarter: 2012Q2

REPORT INFORMATION
  Report Type: 
  Country: None (occurrence: None)
  Receive Date: 20120531
  Receipt Date: 20120524
  Transmission Date: 20120825
  Serious: Yes (Other)
  Sender: FDA-Public Use
  Company Number: JP-JNJFOC-20120309064

PATIENT
  Sex: Female

DRUGS (10)
  1. METHOTREXATE [Concomitant]
     Route: 048
     Dates: start: 20110101, end: 20120301
  2. PREDNISONE TAB [Concomitant]
     Route: 048
     Dates: start: 20040101
  3. SIMPONI [Suspect]
     Route: 058
     Dates: start: 20120207, end: 20120316
  4. SIMPONI [Suspect]
     Route: 058
     Dates: start: 20111115
  5. METHOTREXATE [Concomitant]
     Indication: RHEUMATOID ARTHRITIS
     Route: 048
     Dates: start: 20020403
  6. SIMPONI [Suspect]
     Route: 058
     Dates: start: 20120110
  7. SIMPONI [Suspect]
     Route: 058
     Dates: start: 20111018
  8. PREDNISONE TAB [Concomitant]
     Indication: RHEUMATOID ARTHRITIS
     Route: 048
     Dates: start: 20110101, end: 20120301
  9. FOLIC ACID [Concomitant]
     Indication: PROPHYLAXIS
     Route: 048
     Dates: start: 20090925
  10. SIMPONI [Suspect]
     Indication: RHEUMATOID ARTHRITIS
     Route: 058
     Dates: start: 20111213

REACTIONS (3)
  - PYREXIA [None]
  - GASTROENTERITIS [None]
  - PULMONARY TUBERCULOSIS [None]
